FAERS Safety Report 13401020 (Version 2)
Quarter: 2017Q2

REPORT INFORMATION
  Report Type: Spontaneous
  Country: HR (occurrence: HR)
  Receive Date: 20170404
  Receipt Date: 20170426
  Transmission Date: 20170830
  Serious: No
  Sender: FDA-Public Use
  Company Number: HR-AMGEN-HRVSP2017021916

PATIENT
  Age: 57 Year
  Sex: Female

DRUGS (5)
  1. FOLINIC ACID [Concomitant]
     Active Substance: LEUCOVORIN
     Dosage: UNK UNK, CYCLICAL
     Dates: start: 201607
  2. VECTIBIX [Suspect]
     Active Substance: PANITUMUMAB
     Indication: COLON CANCER
     Dosage: UNK UNK, CYCLICAL
     Route: 065
     Dates: start: 201607
  3. IRINOTECAN [Concomitant]
     Active Substance: IRINOTECAN
     Dosage: UNK UNK, CYCLICAL
     Dates: start: 201607
  4. VECTIBIX [Suspect]
     Active Substance: PANITUMUMAB
     Dosage: UNK
     Route: 065
  5. 5 FU [Concomitant]
     Active Substance: FLUOROURACIL
     Dosage: UNK UNK, CYCLICAL
     Dates: start: 201607

REACTIONS (2)
  - Dermatitis acneiform [Unknown]
  - Rash [Unknown]

NARRATIVE: CASE EVENT DATE: 201609
